FAERS Safety Report 8620405-2 (Version None)
Quarter: 2012Q3

REPORT INFORMATION
  Report Type: 
  Country: None (occurrence: None)
  Receive Date: 20120824
  Receipt Date: 20120817
  Transmission Date: 20120928
  Serious: Yes (Death, Hospitalization)
  Sender: FDA-Public Use
  Company Number: GB-GLAXOSMITHKLINE-B0815166B

PATIENT
  Sex: Male
  Weight: 106.5 kg

DRUGS (6)
  1. LAPATINIB [Suspect]
     Indication: METASTATIC CARCINOMA OF THE BLADDER
     Route: 048
     Dates: start: 20120614, end: 20120709
  2. ALLOPURINOL [Concomitant]
  3. ATENOLOL [Concomitant]
  4. RAMIPRIL [Concomitant]
  5. ENOXAPARIN SODIUM [Concomitant]
  6. AMLODIPINE [Concomitant]

REACTIONS (1)
  - HEPATIC FAILURE [None]
